FAERS Safety Report 8791777 (Version 1)
Quarter: 2012Q4

REPORT INFORMATION
  Report Type: 
  Country: US (occurrence: US)
  Receive Date: 20120918
  Receipt Date: 20120918
  Transmission Date: 20130627
  Serious: No
  Sender: FDA-Public Use
  Company Number: US-ASTRAZENECA-2012SE70111

PATIENT
  Age: 49 Year
  Sex: Male
  Weight: 99.8 kg

DRUGS (14)
  1. LISINOPRIL [Suspect]
     Indication: HYPERTENSION
     Route: 048
  2. SEROQUEL XR [Suspect]
     Indication: BIPOLAR DISORDER
     Route: 048
  3. SEROQUEL XR [Suspect]
     Indication: TACHYPHRENIA
     Route: 048
  4. SEROQUEL XR [Suspect]
     Indication: POST-TRAUMATIC STRESS DISORDER
     Route: 048
  5. SEROQUEL XR [Suspect]
     Indication: SLEEP DISORDER
     Route: 048
  6. CELEXA [Concomitant]
     Indication: ANXIETY
  7. CELEXA [Concomitant]
     Indication: DEPRESSION
  8. LAMICTAL [Concomitant]
  9. METFORMIN [Concomitant]
     Indication: TYPE 2 DIABETES MELLITUS
  10. LOVASTATIN [Concomitant]
     Indication: BLOOD CHOLESTEROL ABNORMAL
  11. XANAX [Concomitant]
     Dosage: ONCE PRN
  12. FLONASE [Concomitant]
     Indication: NASAL POLYPS
  13. TESTOSTERONE SHOTS [Concomitant]
     Indication: LOSS OF LIBIDO
  14. TESTOSTERONE SHOTS [Concomitant]
     Indication: ASTHENIA

REACTIONS (8)
  - Tachyphrenia [Unknown]
  - Middle insomnia [Unknown]
  - Nasal polyps [Unknown]
  - Insomnia [Unknown]
  - Dyspnoea [Unknown]
  - Off label use [Unknown]
  - Off label use [Unknown]
  - Drug dose omission [Unknown]
